FAERS Safety Report 4997184-3 (Version None)
Quarter: 2006Q2

REPORT INFORMATION
  Report Type: 
  Country: None (occurrence: None)
  Receive Date: 20060508
  Receipt Date: 20060508
  Transmission Date: 20061013
  Serious: Yes (Hospitalization)
  Sender: FDA-Public Use
  Company Number: None

PATIENT
  Age: 89 Year
  Sex: Male
  Weight: 71 kg

DRUGS (1)
  1. NORVASC [Suspect]
     Dosage: 10 MG DAILY PO
     Route: 048

REACTIONS (3)
  - DIZZINESS [None]
  - ORTHOSTATIC HYPOTENSION [None]
  - SYNCOPE [None]
